FAERS Safety Report 9727215 (Version 3)
Quarter: 2014Q1

REPORT INFORMATION
  Report Type: Spontaneous
  Country: US (occurrence: US)
  Receive Date: 20131203
  Receipt Date: 20140107
  Transmission Date: 20141002
  Serious: Yes (Other)
  Sender: FDA-Public Use
  Company Number: US-PFIZER INC-2013344543

PATIENT
  Age: 77 Year
  Sex: Male
  Weight: 104 kg

DRUGS (4)
  1. TIKOSYN [Suspect]
     Indication: ATRIAL FIBRILLATION
     Dosage: 0.25 MG, 2X/DAY
     Route: 048
     Dates: start: 201303
  2. MELOXICAM [Interacting]
     Indication: ARTHRITIS
     Dosage: 15 MG, DAILY
     Dates: start: 20131130
  3. MELOXICAM [Interacting]
     Indication: JOINT SWELLING
  4. XARELTO [Concomitant]
     Dosage: UNK

REACTIONS (4)
  - Atrial fibrillation [Recovered/Resolved]
  - Drug interaction [Unknown]
  - Joint swelling [Unknown]
  - Heart rate increased [Unknown]
